FAERS Safety Report 8764380 (Version 2)
Quarter: 2013Q2

REPORT INFORMATION
  Report Type: Spontaneous
  Country: US (occurrence: US)
  Receive Date: 20120830
  Receipt Date: 20130409
  Transmission Date: 20140414
  Serious: Yes (Hospitalization)
  Sender: FDA-Public Use
  Company Number: PHHY2012US073546

PATIENT
  Age: 58 Year
  Sex: Female

DRUGS (8)
  1. TRIAMCINOLONE [Suspect]
     Indication: SPINAL COLUMN STENOSIS
     Route: 008
  2. RITONAVIR [Interacting]
     Dosage: 100 MG, UNK
  3. EMTRICITABINE [Concomitant]
  4. FOSAMPRENAVIR [Concomitant]
     Dosage: 1400 MG, DAILY
  5. HYDROCHLOROTHIAZIDE [Concomitant]
     Dosage: 25 MG, DAILY
  6. OMEPRAZOLE [Concomitant]
     Dosage: 40 MG, DAILY
  7. PRAVASTATIN [Concomitant]
     Dosage: 80 MG, DAILY
  8. HYDROCODONE W/ACETAMINOPHEN [Concomitant]
     Indication: BACK PAIN

REACTIONS (17)
  - Cushing^s syndrome [Unknown]
  - Generalised oedema [Recovering/Resolving]
  - Fatigue [Recovering/Resolving]
  - Asthenia [Recovering/Resolving]
  - Dyspnoea exertional [Recovering/Resolving]
  - Tremor [Recovering/Resolving]
  - Insomnia [Recovering/Resolving]
  - Weight increased [Recovering/Resolving]
  - Cushingoid [Recovering/Resolving]
  - Central obesity [Recovering/Resolving]
  - Ecchymosis [Recovering/Resolving]
  - Oedema peripheral [Recovering/Resolving]
  - Anxiety [Unknown]
  - Hyperhidrosis [Recovering/Resolving]
  - Adrenal insufficiency [Recovering/Resolving]
  - Hypothalamo-pituitary disorder [Recovering/Resolving]
  - Drug interaction [Unknown]
